FAERS Safety Report 4574179-5 (Version None)
Quarter: 2005Q1

REPORT INFORMATION
  Report Type: 
  Country: None (occurrence: None)
  Receive Date: 20050208
  Receipt Date: 20050127
  Transmission Date: 20050727
  Serious: Yes (Hospitalization)
  Sender: FDA-Public Use
  Company Number: JP-NOVOPROD-241899

PATIENT
  Age: 46 Year
  Sex: Male
  Weight: 54 kg

DRUGS (2)
  1. NOVOLIN R [Suspect]
     Indication: DIABETES MELLITUS
     Dosage: 38 IU, QD
     Route: 058
     Dates: start: 20041229, end: 20050118
  2. NOVOLIN N [Suspect]
     Indication: DIABETES MELLITUS
     Dosage: UNK, UNK
     Dates: start: 20041229, end: 20050118

REACTIONS (1)
  - INJECTION SITE INDURATION [None]
